FAERS Safety Report 11391752 (Version 1)
Quarter: 2015Q3

REPORT INFORMATION
  Report Type: Spontaneous
  Country: US (occurrence: US)
  Receive Date: 20150818
  Receipt Date: 20150818
  Transmission Date: 20151125
  Serious: Yes (Death)
  Sender: FDA-Public Use
  Company Number: US-PFIZER INC-2015259940

PATIENT
  Age: 58 Year
  Sex: Female
  Weight: 46 kg

DRUGS (1)
  1. SUTENT [Suspect]
     Active Substance: SUNITINIB MALATE
     Indication: RENAL CANCER METASTATIC
     Dosage: UNK

REACTIONS (6)
  - Renal cancer metastatic [Fatal]
  - Disease progression [Fatal]
  - Nausea [Unknown]
  - Blood disorder [Unknown]
  - Diarrhoea [Unknown]
  - Lethargy [Unknown]
